FAERS Safety Report 6041972-1 (Version None)
Quarter: 2009Q1

REPORT INFORMATION
  Report Type: 
  Country: None (occurrence: None)
  Receive Date: 20090116
  Receipt Date: 20090107
  Transmission Date: 20090719
  Serious: Yes (Hospitalization)
  Sender: FDA-Public Use
  Company Number: FR-PFIZER INC-2005078065

PATIENT

DRUGS (6)
  1. SUNITINIB MALATE [Suspect]
     Indication: METASTATIC RENAL CELL CARCINOMA
     Dosage: 50 MG, 1X/DAY
     Route: 048
     Dates: start: 20050426
  2. ALDACTAZINE [Concomitant]
     Route: 048
     Dates: start: 19900101
  3. VERAPAMIL [Concomitant]
     Route: 048
     Dates: start: 19900101
  4. TAHOR [Concomitant]
     Route: 048
     Dates: start: 20050523
  5. LEXOMIL [Concomitant]
     Route: 048
     Dates: start: 20050528, end: 20050523
  6. TENORMIN [Concomitant]
     Route: 048
     Dates: start: 20050519

REACTIONS (3)
  - CHEST PAIN [None]
  - CONDITION AGGRAVATED [None]
  - HAEMATURIA [None]
